FAERS Safety Report 12376443 (Version 3)
Quarter: 2016Q2

REPORT INFORMATION
  Report Type: Spontaneous
  Country: US (occurrence: US)
  Receive Date: 20160517
  Receipt Date: 20160626
  Transmission Date: 20160815
  Serious: Yes (Other)
  Sender: FDA-Public Use
  Company Number: US-009507513-1605USA005869

PATIENT
  Age: 82 Year
  Sex: Male

DRUGS (17)
  1. SIMVASTATIN TABLETS, USP [Concomitant]
     Active Substance: SIMVASTATIN
     Indication: PRODUCT USED FOR UNKNOWN INDICATION
     Dosage: 1 DF, QPM
     Route: 048
     Dates: start: 20130802
  2. HYDROCORTISONE. [Concomitant]
     Active Substance: HYDROCORTISONE
     Dosage: 5 MG, QPM
     Route: 048
     Dates: start: 20150302, end: 20150819
  3. ASPIRIN. [Concomitant]
     Active Substance: ASPIRIN
     Indication: CORONARY ARTERY DISEASE
     Dosage: 1 DF, QD
     Route: 048
     Dates: start: 20130327
  4. METOPROLOL. [Concomitant]
     Active Substance: METOPROLOL
     Indication: PRODUCT USED FOR UNKNOWN INDICATION
     Dosage: 1 DF, QAM
     Route: 048
     Dates: start: 20150302
  5. OMEPRAZOLE. [Concomitant]
     Active Substance: OMEPRAZOLE
     Indication: PRODUCT USED FOR UNKNOWN INDICATION
     Dosage: 1 DF, BID
     Route: 048
     Dates: start: 20150302, end: 20150819
  6. KEYTRUDA [Suspect]
     Active Substance: PEMBROLIZUMAB
     Dosage: EVERY 3 WEEKS
     Route: 042
     Dates: start: 20150429
  7. CALCIO (CALCITRIOL) [Concomitant]
     Indication: PRODUCT USED FOR UNKNOWN INDICATION
     Dosage: 1000 MG, TID
     Route: 048
     Dates: start: 20130327
  8. METOPROLOL. [Concomitant]
     Active Substance: METOPROLOL
     Dosage: 0.5 DF, QPM
     Route: 048
     Dates: start: 20150302
  9. NITROGLYCERIN. [Concomitant]
     Active Substance: NITROGLYCERIN
     Indication: ANGINA PECTORIS
     Dosage: 1 DF, UNKNOWN
     Route: 060
     Dates: start: 20130327, end: 20150420
  10. HYDROCORTISONE. [Concomitant]
     Active Substance: HYDROCORTISONE
     Indication: PRODUCT USED FOR UNKNOWN INDICATION
     Dosage: 20 MG, QAM
     Route: 048
     Dates: start: 20150302, end: 20150819
  11. TYLENOL EXTRA STRENGTH [Concomitant]
     Active Substance: ACETAMINOPHEN
     Indication: PRODUCT USED FOR UNKNOWN INDICATION
     Dosage: 2 DF, PRN
     Route: 048
     Dates: start: 20130327, end: 20160318
  12. LISINOPRIL. [Concomitant]
     Active Substance: LISINOPRIL
     Indication: PRODUCT USED FOR UNKNOWN INDICATION
     Dosage: 1 DF, QD
     Route: 048
     Dates: start: 20140228
  13. TIROSINT [Concomitant]
     Active Substance: LEVOTHYROXINE SODIUM
     Indication: PRODUCT USED FOR UNKNOWN INDICATION
     Dosage: 1 DF, QD
     Route: 048
     Dates: start: 20130503, end: 20150420
  14. ZANTAC 75 [Concomitant]
     Active Substance: RANITIDINE HYDROCHLORIDE
     Indication: PRODUCT USED FOR UNKNOWN INDICATION
     Dosage: 1 DF, BID
     Route: 048
     Dates: start: 20140228, end: 20150513
  15. KEYTRUDA [Suspect]
     Active Substance: PEMBROLIZUMAB
     Indication: MALIGNANT MELANOMA STAGE IV
     Dosage: EVERY 3 WEEKS
     Route: 042
     Dates: start: 201502, end: 20150406
  16. PRADAXA [Concomitant]
     Active Substance: DABIGATRAN ETEXILATE MESYLATE
     Indication: PRODUCT USED FOR UNKNOWN INDICATION
     Dosage: 1 DF, BID
     Route: 048
     Dates: start: 20130327
  17. PROBIOTICS (UNSPECIFIED) [Concomitant]
     Active Substance: PROBIOTICS NOS
     Indication: PRODUCT USED FOR UNKNOWN INDICATION
     Dosage: 6 DF, QD
     Route: 048

REACTIONS (3)
  - Papillitis [Unknown]
  - Uveitis [Recovered/Resolved]
  - Uveitis [Recovered/Resolved]

NARRATIVE: CASE EVENT DATE: 2015
